FAERS Safety Report 12897093 (Version 1)
Quarter: 2016Q4

REPORT INFORMATION
  Report Type: Spontaneous
  Country: US (occurrence: US)
  Receive Date: 20161028
  Receipt Date: 20161028
  Transmission Date: 20170207
  Serious: No
  Sender: FDA-Public Use
  Company Number: None

PATIENT
  Age: 33 Year
  Sex: Male
  Weight: 91.35 kg

DRUGS (1)
  1. HUMAN CHORIONIC GONADTROPIN [Suspect]
     Active Substance: GONADOTROPHIN, CHORIONIC

REACTIONS (1)
  - Product quality issue [None]
